FAERS Safety Report 26035506 (Version 1)
Quarter: 2025Q4

REPORT INFORMATION
  Report Type: Spontaneous
  Country: EU (occurrence: EU)
  Receive Date: 20251112
  Receipt Date: 20251112
  Transmission Date: 20260118
  Serious: Yes (Hospitalization, Other)
  Sender: B. BRAUN MEDICAL INC.
  Company Number: EU-BBM-SK-BBM-202503274

PATIENT
  Age: 60 Year
  Sex: Female

DRUGS (8)
  1. PROPOFOL [Suspect]
     Active Substance: PROPOFOL
  2. PIPERACILLIN AND TAZOBACTAM [Suspect]
     Active Substance: PIPERACILLIN SODIUM\TAZOBACTAM SODIUM
  3. AMIODARONE [Suspect]
     Active Substance: AMIODARONE
  4. CIPROFLOXACIN [Suspect]
     Active Substance: CIPROFLOXACIN
  5. TERLIPRESSIN ACETATE [Suspect]
     Active Substance: TERLIPRESSIN ACETATE
  6. FLUCONAZOLE [Suspect]
     Active Substance: FLUCONAZOLE
  7. PROPAFENONE [Suspect]
     Active Substance: PROPAFENONE
  8. METOCLOPRAMIDE [Suspect]
     Active Substance: METOCLOPRAMIDE

REACTIONS (1)
  - Torsade de pointes [Recovering/Resolving]
